FAERS Safety Report 8814762 (Version 2)
Quarter: 2012Q4

REPORT INFORMATION
  Report Type: 
  Country: US (occurrence: US)
  Receive Date: 20120928
  Receipt Date: 20121112
  Transmission Date: 20130627
  Serious: No
  Sender: FDA-Public Use
  Company Number: US-TEVA-361344USA

PATIENT
  Age: 51 Year
  Sex: Female
  Weight: 59.02 kg

DRUGS (1)
  1. PROAIR HFA [Suspect]
     Indication: UPPER RESPIRATORY TRACT INFECTION
     Dosage: 2 inhalations every 6 hours prn
     Dates: start: 20120918, end: 201209

REACTIONS (8)
  - Vomiting [Recovered/Resolved]
  - Cough [Unknown]
  - Retching [Unknown]
  - Tremor [Unknown]
  - Dyspnoea [Unknown]
  - Product taste abnormal [Unknown]
  - Off label use [Unknown]
  - Headache [Unknown]
